FAERS Safety Report 4972830-9 (Version None)
Quarter: 2006Q2

REPORT INFORMATION
  Report Type: 
  Country: None (occurrence: None)
  Receive Date: 20060414
  Receipt Date: 20060405
  Transmission Date: 20061013
  Serious: Yes (Hospitalization)
  Sender: FDA-Public Use
  Company Number: FR-JNJFOC-20050400398

PATIENT
  Age: 53 Year
  Sex: Male

DRUGS (12)
  1. RISPERDAL [Suspect]
     Indication: DRUG USE FOR UNKNOWN INDICATION
     Route: 048
     Dates: start: 20040101, end: 20050218
  2. PAROXETINE HYDROCHLORIDE [Suspect]
     Indication: DRUG USE FOR UNKNOWN INDICATION
     Route: 048
  3. MEPRONIZINE [Concomitant]
  4. MEPRONIZINE [Concomitant]
  5. RIVOTRIL [Concomitant]
  6. VILOXAZINE HCL [Concomitant]
  7. AKINETON [Concomitant]
  8. ZESTRIL [Concomitant]
  9. PREVISCAN [Concomitant]
  10. TEMESTA [Concomitant]
  11. LOXEN [Concomitant]
  12. TENORMIN [Concomitant]

REACTIONS (11)
  - AGITATION [None]
  - BLOOD CREATINE PHOSPHOKINASE INCREASED [None]
  - COMA [None]
  - DISORIENTATION [None]
  - ECCHYMOSIS [None]
  - FALL [None]
  - FLUID OVERLOAD [None]
  - HYPONATRAEMIA [None]
  - INAPPROPRIATE ANTIDIURETIC HORMONE SECRETION [None]
  - PROTHROMBIN TIME PROLONGED [None]
  - TREMOR [None]
